FAERS Safety Report 5952031-8 (Version None)
Quarter: 2008Q4

REPORT INFORMATION
  Report Type: 
  Country: None (occurrence: None)
  Receive Date: 20081113
  Receipt Date: 20071206
  Transmission Date: 20090506
  Serious: No
  Sender: FDA-Public Use
  Company Number: A0698870A

PATIENT
  Sex: Male

DRUGS (2)
  1. COREG [Suspect]
     Indication: HYPERTENSION
  2. LIPITOR [Concomitant]
     Indication: HYPERTENSION

REACTIONS (2)
  - ADVERSE EVENT [None]
  - RENAL DISORDER [None]
